FAERS Safety Report 7453561-2 (Version None)
Quarter: 2011Q2

REPORT INFORMATION
  Report Type: 
  Country: None (occurrence: None)
  Receive Date: 20110502
  Receipt Date: 20110301
  Transmission Date: 20111010
  Serious: No
  Sender: FDA-Public Use
  Company Number: US-ASTRAZENECA-2011SE11197

PATIENT
  Age: 73 Year
  Sex: Female
  Weight: 72.6 kg

DRUGS (1)
  1. NEXIUM [Suspect]
     Indication: GASTROOESOPHAGEAL REFLUX DISEASE
     Route: 048
     Dates: start: 20110228, end: 20110228

REACTIONS (3)
  - ABDOMINAL DISCOMFORT [None]
  - OESOPHAGEAL DISCOMFORT [None]
  - ERUCTATION [None]
